FAERS Safety Report 8001373-3 (Version None)
Quarter: 2011Q4

REPORT INFORMATION
  Report Type: 
  Country: None (occurrence: None)
  Receive Date: 20111219
  Receipt Date: 20111205
  Transmission Date: 20120403
  Serious: Yes (Hospitalization, Other)
  Sender: FDA-Public Use
  Company Number: 2011SP057282

PATIENT
  Sex: Female

DRUGS (2)
  1. PEG-INTRON [Suspect]
     Indication: HEPATITIS C
     Dates: start: 20111021
  2. RIBAVIRIN [Suspect]
     Indication: HEPATITIS C
     Dates: start: 20111021

REACTIONS (3)
  - DEHYDRATION [None]
  - WEIGHT DECREASED [None]
  - DECREASED APPETITE [None]
